FAERS Safety Report 8408292 (Version 2)
Quarter: 2012Q4

REPORT INFORMATION
  Report Type: 
  Country: TR (occurrence: TR)
  Receive Date: 20120216
  Receipt Date: 20120906
  Transmission Date: 20130627
  Serious: Yes (Hospitalization, Other)
  Sender: FDA-Public Use
  Company Number: TR-PFIZER INC-2012039311

PATIENT
  Age: 19 Month
  Sex: Male

DRUGS (1)
  1. DOSTINEX [Suspect]
     Dosage: 2 tablets at 0.5 mg
     Route: 048

REACTIONS (2)
  - Accidental exposure to product by child [Recovered/Resolved]
  - Hypothermia [Recovered/Resolved]
